FAERS Safety Report 18774015 (Version 2)
Quarter: 2021Q1

REPORT INFORMATION
  Report Type: Spontaneous
  Country: US (occurrence: US)
  Receive Date: 20210122
  Receipt Date: 20210303
  Transmission Date: 20210419
  Serious: No
  Sender: FDA-Public Use
  Company Number: US-ELI_LILLY_AND_COMPANY-US202101005093

PATIENT
  Age: 43 Year
  Sex: Female
  Weight: 113.4 kg

DRUGS (1)
  1. BAMLANIVIMAB 700MG [Suspect]
     Active Substance: BAMLANIVIMAB
     Indication: COVID-19
     Dosage: 700 MG, SINGLE
     Route: 042
     Dates: start: 20210107, end: 20210107

REACTIONS (6)
  - Dyspnoea [Unknown]
  - Pain [Unknown]
  - Infusion related reaction [Unknown]
  - Malaise [Unknown]
  - Abdominal pain [Unknown]
  - COVID-19 pneumonia [Unknown]

NARRATIVE: CASE EVENT DATE: 20210109
